FAERS Safety Report 5411248-1 (Version None)
Quarter: 2007Q3

REPORT INFORMATION
  Report Type: 
  Country: None (occurrence: None)
  Receive Date: 20070810
  Receipt Date: 20070806
  Transmission Date: 20080115
  Serious: Yes (Other)
  Sender: FDA-Public Use
  Company Number: D0054204A

PATIENT
  Sex: Male

DRUGS (1)
  1. QUILONUM RETARD [Suspect]
     Dosage: 450MG UNKNOWN
     Route: 048
     Dates: start: 19850101

REACTIONS (4)
  - ARRHYTHMIA [None]
  - BRADYCARDIA [None]
  - HYPERTENSION [None]
  - SICK SINUS SYNDROME [None]
